FAERS Safety Report 8197471-4 (Version None)
Quarter: 2012Q1

REPORT INFORMATION
  Report Type: 
  Country: None (occurrence: None)
  Receive Date: 20120309
  Receipt Date: 20120301
  Transmission Date: 20120608
  Serious: Yes (Other)
  Sender: FDA-Public Use
  Company Number: DZ-ROCHE-1046809

PATIENT
  Age: 40 Year
  Sex: Female

DRUGS (3)
  1. PACLITAXEL [Suspect]
     Indication: BREAST CANCER
     Dates: start: 20111101
  2. AVASTIN [Suspect]
     Indication: BREAST CANCER
     Dates: start: 20111101
  3. ZOLEDRONIC ACID [Suspect]
     Indication: BREAST CANCER
     Dates: start: 20111101

REACTIONS (2)
  - PATHOLOGICAL FRACTURE [None]
  - DISEASE PROGRESSION [None]
